FAERS Safety Report 13613525 (Version 3)
Quarter: 2017Q3

REPORT INFORMATION
  Report Type: Report from Study
  Country: BR (occurrence: BR)
  Receive Date: 20170605
  Receipt Date: 20170830
  Transmission Date: 20171127
  Serious: Yes (Other)
  Sender: FDA-Public Use
  Company Number: PHHY2017BR077098

PATIENT
  Age: 64 Year
  Sex: Female
  Weight: 84 kg

DRUGS (1)
  1. FORASEQ [Suspect]
     Active Substance: BUDESONIDE\FORMOTEROL FUMARATE
     Indication: EMPHYSEMA
     Dosage: 1 DF (BUDESONIDE 12 UG, FORMOTEROL FUMARATE 400 UG), QD
     Route: 055

REACTIONS (5)
  - Product physical issue [Unknown]
  - Dysstasia [Unknown]
  - Gait disturbance [Unknown]
  - Movement disorder [Unknown]
  - Accident [Unknown]

NARRATIVE: CASE EVENT DATE: 20160104
